FAERS Safety Report 21873823 (Version 1)
Quarter: 2023Q1

REPORT INFORMATION
  Report Type: Spontaneous
  Country: US (occurrence: US)
  Receive Date: 20230117
  Receipt Date: 20230117
  Transmission Date: 20230417
  Serious: No
  Sender: FDA-Public Use
  Company Number: US-NOVOPROD-919627

PATIENT
  Sex: Male

DRUGS (2)
  1. RYBELSUS [Suspect]
     Active Substance: SEMAGLUTIDE
     Dosage: 14 MG (DOSE INCREASED)
     Route: 048
  2. RYBELSUS [Suspect]
     Active Substance: SEMAGLUTIDE
     Indication: Type 2 diabetes mellitus
     Dosage: 7 MG
     Route: 048
     Dates: start: 202202

REACTIONS (4)
  - Migraine [Unknown]
  - Glycosylated haemoglobin increased [Not Recovered/Not Resolved]
  - Wrong technique in product usage process [Unknown]
  - Drug ineffective [Not Recovered/Not Resolved]
